FAERS Safety Report 10663159 (Version 3)
Quarter: 2015Q3

REPORT INFORMATION
  Report Type: Spontaneous
  Country: US (occurrence: US)
  Receive Date: 20141218
  Receipt Date: 20150819
  Transmission Date: 20151125
  Serious: No
  Sender: FDA-Public Use
  Company Number: US-GILEAD-2014-0128220

PATIENT
  Age: 37 Year
  Sex: Male

DRUGS (4)
  1. REVATIO [Concomitant]
     Active Substance: SILDENAFIL CITRATE
  2. OXYGEN. [Concomitant]
     Active Substance: OXYGEN
  3. LETAIRIS [Suspect]
     Active Substance: AMBRISENTAN
     Indication: PRODUCT USED FOR UNKNOWN INDICATION
     Dosage: 5 MG, QD
     Route: 065
     Dates: start: 20130102
  4. ORENITRAM [Concomitant]
     Active Substance: TREPROSTINIL

REACTIONS (3)
  - Oxygen saturation decreased [Unknown]
  - Oxygen consumption increased [Unknown]
  - Dizziness [Unknown]
